FAERS Safety Report 9738973 (Version 1)
Quarter: 2013Q4

REPORT INFORMATION
  Report Type: Spontaneous
  Country: US (occurrence: US)
  Receive Date: 20131209
  Receipt Date: 20131209
  Transmission Date: 20140711
  Serious: Yes (Hospitalization)
  Sender: FDA-Public Use
  Company Number: US-BAYER-2013-148563

PATIENT
  Age: 22 Year
  Sex: Female

DRUGS (4)
  1. YAZ [Suspect]
  2. YASMIN [Suspect]
  3. TRETINOIN [Concomitant]
     Dosage: 0.05 %, UNK
     Dates: start: 20101215, end: 20110622
  4. VICODIN [Concomitant]
     Dosage: 5MG-500MG? AS NEEDED, EVERY 4 HOURS, EVERY 6 HOURS
     Dates: start: 20110110, end: 20110119

REACTIONS (1)
  - Pulmonary embolism [None]
